FAERS Safety Report 13043794 (Version 1)
Quarter: 2016Q4

REPORT INFORMATION
  Report Type: Spontaneous
  Country: FR (occurrence: FR)
  Receive Date: 20161220
  Receipt Date: 20161220
  Transmission Date: 20170207
  Serious: Yes (Hospitalization)
  Sender: FDA-Public Use
  Company Number: FR-009507513-1612FRA008185

PATIENT
  Age: 45 Year
  Sex: Male

DRUGS (1)
  1. KEYTRUDA [Suspect]
     Active Substance: PEMBROLIZUMAB
     Indication: METASTATIC MALIGNANT MELANOMA
     Dosage: DURATION=8 CYCLES, UNK
     Route: 042
     Dates: start: 20160210, end: 20160727

REACTIONS (1)
  - Chronic hepatitis [Recovering/Resolving]

NARRATIVE: CASE EVENT DATE: 20160706
